FAERS Safety Report 6980008-2 (Version None)
Quarter: 2010Q3

REPORT INFORMATION
  Report Type: 
  Country: None (occurrence: None)
  Receive Date: 20100914
  Receipt Date: 20100903
  Transmission Date: 20110219
  Serious: Yes (Disabling, Other)
  Sender: FDA-Public Use
  Company Number: US-PFIZER INC-2010112412

PATIENT
  Sex: Male
  Weight: 106 kg

DRUGS (9)
  1. CADUET [Suspect]
     Indication: HYPERTENSION
     Dosage: 10/20 MG ONCE A DAY
     Route: 048
     Dates: start: 20070101
  2. CADUET [Suspect]
     Indication: BLOOD CHOLESTEROL INCREASED
  3. LEXAPRO [Concomitant]
     Dosage: 10 MG, 2X/DAY
  4. XANAX [Concomitant]
     Dosage: 0.5 MG, DAILY
  5. NORTRIPTYLINE [Concomitant]
     Dosage: 50 MG, DAILY
  6. NEXIUM [Concomitant]
     Dosage: 40 MG, DAILY
  7. NIACIN [Concomitant]
     Dosage: 500 MG, DAILY
  8. POTASSIUM [Concomitant]
     Dosage: 20 MG, DAILY
  9. CENTRUM CARDIO [Concomitant]
     Dosage: UNK

REACTIONS (5)
  - HYPERTENSION [None]
  - HYPOTENSION [None]
  - MIGRAINE [None]
  - SYNCOPE [None]
  - TYPE 2 DIABETES MELLITUS [None]
